FAERS Safety Report 18260500 (Version 1)
Quarter: 2020Q3

REPORT INFORMATION
  Report Type: Spontaneous
  Country: GB (occurrence: GB)
  Receive Date: 20200914
  Receipt Date: 20200914
  Transmission Date: 20201103
  Serious: Yes (Other)
  Sender: FDA-Public Use
  Company Number: GB-TEVA-2020-GB-1825530

PATIENT
  Sex: Female

DRUGS (1)
  1. NAPROXEN. [Suspect]
     Active Substance: NAPROXEN
     Dosage: 2 TAKEN, 8 HOURS APART, 3 DOSAGE FORMS
     Route: 048
     Dates: start: 20200802, end: 20200802

REACTIONS (5)
  - Headache [Recovered/Resolved]
  - Fatigue [Recovered/Resolved]
  - Swelling face [Recovered/Resolved]
  - Swelling of eyelid [Recovered/Resolved]
  - Rash macular [Recovered/Resolved]

NARRATIVE: CASE EVENT DATE: 20200802
